FAERS Safety Report 9541706 (Version 1)
Quarter: 2013Q2

REPORT INFORMATION
  Report Type: Spontaneous
  Country: US (occurrence: None)
  Receive Date: 20130524
  Receipt Date: 20130524
  Transmission Date: 20140414
  Serious: Yes (Other)
  Sender: FDA-Public Use
  Company Number: PHEH2013US002449

PATIENT
  Age: 49 Year
  Sex: Female

DRUGS (1)
  1. GILENYA [Suspect]
     Indication: MULTIPLE SCLEROSIS
     Route: 048
     Dates: start: 201208

REACTIONS (6)
  - Musculoskeletal stiffness [None]
  - Decreased appetite [None]
  - Retching [None]
  - Vomiting [None]
  - Nausea [None]
  - Headache [None]
